FAERS Safety Report 5714102-0 (Version None)
Quarter: 2008Q2

REPORT INFORMATION
  Report Type: 
  Country: None (occurrence: None)
  Receive Date: 20080422
  Receipt Date: 20080422
  Transmission Date: 20081010
  Serious: Yes (Hospitalization)
  Sender: FDA-Public Use
  Company Number: None

PATIENT
  Sex: Female
  Weight: 63.9572 kg

DRUGS (1)
  1. DASATINIB  50MG  BMS [Suspect]
     Indication: NEOPLASM MALIGNANT
     Dosage: 150MG ONCE DAILY PO
     Route: 048
     Dates: start: 20080421, end: 20080421

REACTIONS (7)
  - AGITATION [None]
  - BLOOD PRESSURE ABNORMAL [None]
  - DIZZINESS [None]
  - PO2 DECREASED [None]
  - RASH ERYTHEMATOUS [None]
  - RASH GENERALISED [None]
  - RASH PRURITIC [None]
